FAERS Safety Report 7061892-3 (Version None)
Quarter: 2010Q4

REPORT INFORMATION
  Report Type: 
  Country: None (occurrence: None)
  Receive Date: 20101026
  Receipt Date: 20101014
  Transmission Date: 20110411
  Serious: Yes (Hospitalization, Other)
  Sender: FDA-Public Use
  Company Number: US-ELI_LILLY_AND_COMPANY-US201010003930

PATIENT
  Sex: Female

DRUGS (4)
  1. FORTEO [Suspect]
     Indication: OSTEOPOROSIS
     Dosage: 20 UG, DAILY (1/D)
     Route: 058
  2. CALCIUM [Concomitant]
  3. VITAMIN D [Concomitant]
  4. INSULIN [Concomitant]

REACTIONS (5)
  - CHOLELITHIASIS [None]
  - FALL [None]
  - FEMUR FRACTURE [None]
  - PAIN [None]
  - PANCREATITIS [None]
